FAERS Safety Report 7219923-3 (Version None)
Quarter: 2011Q1

REPORT INFORMATION
  Report Type: 
  Country: None (occurrence: None)
  Receive Date: 20110111
  Receipt Date: 20110104
  Transmission Date: 20110831
  Serious: Yes (Other)
  Sender: FDA-Public Use
  Company Number: PHHO2011GB00558

PATIENT
  Age: 68 Year
  Sex: Male
  Weight: 87 kg

DRUGS (4)
  1. ZOLEDRONIC ACID [Suspect]
     Indication: PROSTATE CANCER
     Dosage: 4 MG, UNK
     Route: 042
     Dates: start: 20101122
  2. RAMIPRIL [Concomitant]
  3. AMLODIPINE BESYLATE [Concomitant]
  4. CELECOXIB [Suspect]
     Indication: PROSTATE CANCER
     Dosage: 800 MG, UNK
     Route: 048
     Dates: start: 20101119

REACTIONS (2)
  - EPISTAXIS [None]
  - ANAL HAEMORRHAGE [None]
